FAERS Safety Report 9336490 (Version 1)
Quarter: 2013Q2

REPORT INFORMATION
  Report Type: Spontaneous
  Country: US (occurrence: US)
  Receive Date: 20130607
  Receipt Date: 20130607
  Transmission Date: 20140414
  Serious: No
  Sender: FDA-Public Use
  Company Number: US-BAYER-2013-069919

PATIENT
  Sex: Female
  Weight: 113.38 kg

DRUGS (2)
  1. BETASERON [Suspect]
     Indication: MULTIPLE SCLEROSIS
     Dosage: 0.3 MG, QOD
     Route: 058
     Dates: start: 2007, end: 2008
  2. CYMBALTA [Concomitant]

REACTIONS (1)
  - Influenza like illness [Not Recovered/Not Resolved]
